FAERS Safety Report 15534228 (Version 1)
Quarter: 2018Q4

REPORT INFORMATION
  Report Type: Spontaneous
  Country: US (occurrence: US)
  Receive Date: 20181019
  Receipt Date: 20181019
  Transmission Date: 20190205
  Serious: Yes (Hospitalization)
  Sender: FDA-Public Use
  Company Number: None

PATIENT
  Age: 27 Year
  Sex: Female

DRUGS (6)
  1. ESCITALOPRAM [Concomitant]
     Active Substance: ESCITALOPRAM OXALATE
  2. CELECOXIB. [Concomitant]
     Active Substance: CELECOXIB
  3. PANTOPRAZOLE [Concomitant]
     Active Substance: PANTOPRAZOLE
  4. PREDNISONE. [Concomitant]
     Active Substance: PREDNISONE
  5. PULMOZYME [Suspect]
     Active Substance: DORNASE ALFA
     Indication: INTERSTITIAL LUNG DISEASE
     Dosage: ?          OTHER ROUTE:VIA NEBULIZER?
     Dates: start: 20180606
  6. MYCOPHENOLATE [Concomitant]
     Active Substance: MYCOPHENOLIC ACID

REACTIONS (3)
  - Pneumonia [None]
  - Choking [None]
  - Regurgitation [None]

NARRATIVE: CASE EVENT DATE: 20180919
